FAERS Safety Report 10137232 (Version 2)
Quarter: 2014Q2

REPORT INFORMATION
  Report Type: Spontaneous
  Country: US (occurrence: US)
  Receive Date: 20140429
  Receipt Date: 20140429
  Transmission Date: 20141212
  Serious: No
  Sender: FDA-Public Use
  Company Number: US-ABBVIE-14P-163-1211918-00

PATIENT
  Age: 72 Year
  Sex: Male

DRUGS (3)
  1. ANDROGEL [Suspect]
     Indication: BLOOD TESTOSTERONE DECREASED
     Dosage: ALTERNATING BETWEEN 5-6 PUMPS DAILY
     Route: 061
     Dates: start: 20140314
  2. ANDROGEL [Suspect]
     Dosage: INCREASED AND ALTERNATING SOMETIMES 5-6 PUMPS DAILY
     Route: 061
     Dates: start: 20140321
  3. ANDROGEL [Suspect]
     Indication: BLOOD TESTOSTERONE DECREASED
     Dosage: 8 PUMPS DAILY
     Route: 061
     Dates: start: 2000, end: 20140314

REACTIONS (6)
  - Sluggishness [Not Recovered/Not Resolved]
  - Drug ineffective [Not Recovered/Not Resolved]
  - Drug ineffective [Not Recovered/Not Resolved]
  - Asthenia [Not Recovered/Not Resolved]
  - Incorrect dose administered [Not Recovered/Not Resolved]
  - Incorrect dose administered [Not Recovered/Not Resolved]
